FAERS Safety Report 10408925 (Version 2)
Quarter: 2014Q3

REPORT INFORMATION
  Report Type: Spontaneous
  Country: GB (occurrence: None)
  Receive Date: 20140822
  Receipt Date: 20140827
  Transmission Date: 20150326
  Serious: Yes (Hospitalization, Other)
  Sender: FDA-Public Use
  Company Number: AUR-APL-2014-08818

PATIENT
  Age: 75 Year
  Sex: Male

DRUGS (3)
  1. SPIRONOLACTONE (SPIRONOLACTONE) [Suspect]
     Active Substance: SPIRONOLACTONE
     Indication: CARDIAC FAILURE
     Route: 048
     Dates: end: 20120928
  2. RAMIPRIL. [Suspect]
     Active Substance: RAMIPRIL
     Indication: CARDIAC FAILURE
     Dosage: ONCE A DAY
     Route: 048
     Dates: end: 20120928
  3. BISOPROLOL [Suspect]
     Active Substance: BISOPROLOL
     Indication: CARDIAC FAILURE
     Dosage: ONCE A DAY
     Route: 048
     Dates: end: 20120928

REACTIONS (8)
  - Alanine aminotransferase increased [None]
  - Hypophagia [None]
  - Blood alkaline phosphatase increased [None]
  - Renal failure acute [None]
  - Hypotension [None]
  - Blood bilirubin increased [None]
  - Medication error [None]
  - Hypoperfusion [None]

NARRATIVE: CASE EVENT DATE: 20120928
